FAERS Safety Report 5346216-1 (Version None)
Quarter: 2007Q2

REPORT INFORMATION
  Report Type: 
  Country: None (occurrence: None)
  Receive Date: 20070426
  Receipt Date: 20060316
  Transmission Date: 20071010
  Serious: Yes (Hospitalization, Other)
  Sender: FDA-Public Use
  Company Number: US-JNJFOC-20060305047

PATIENT
  Age: 43 Year
  Sex: Female

DRUGS (1)
  1. ULTRAM [Suspect]
     Indication: HEADACHE

REACTIONS (6)
  - AMNESIA [None]
  - CONVULSION [None]
  - DRUG ABUSER [None]
  - DRUG DEPENDENCE [None]
  - DRUG WITHDRAWAL SYNDROME [None]
  - HEAD INJURY [None]
